FAERS Safety Report 24588723 (Version 1)
Quarter: 2024Q4

REPORT INFORMATION
  Report Type: Spontaneous
  Country: CA (occurrence: CA)
  Receive Date: 20241107
  Receipt Date: 20241107
  Transmission Date: 20250114
  Serious: Yes (Hospitalization)
  Sender: STASON PHARMACEUTICALS, INC.
  Company Number: CA-Stason Pharmaceuticals, Inc.-2164634

PATIENT
  Age: 8 Year
  Sex: Male
  Weight: 30 kg

DRUGS (1)
  1. MERCAPTOPURINE [Suspect]
     Active Substance: MERCAPTOPURINE

REACTIONS (2)
  - Febrile neutropenia [Recovered/Resolved]
  - Viral pharyngitis [Recovered/Resolved]
